FAERS Safety Report 5108215-4 (Version None)
Quarter: 2006Q3

REPORT INFORMATION
  Report Type: 
  Country: None (occurrence: None)
  Receive Date: 20060919
  Receipt Date: 20060906
  Transmission Date: 20061208
  Serious: Yes (Other)
  Sender: FDA-Public Use
  Company Number: US-SANOFI-SYNTHELABO-A03200605531

PATIENT
  Age: 65 Year
  Sex: Female
  Weight: 51.3 kg

DRUGS (2)
  1. ELOXATIN [Suspect]
     Indication: COLORECTAL CANCER METASTATIC
     Route: 042
     Dates: start: 20060801, end: 20060801
  2. XELODA [Concomitant]
     Dosage: UNK
     Route: 048
     Dates: start: 20060801

REACTIONS (3)
  - BLINDNESS TRANSIENT [None]
  - DRUG INEFFECTIVE [None]
  - RETINITIS PIGMENTOSA [None]
